FAERS Safety Report 6896972-6 (Version None)
Quarter: 2010Q3

REPORT INFORMATION
  Report Type: 
  Country: None (occurrence: None)
  Receive Date: 20100802
  Receipt Date: 20070427
  Transmission Date: 20110219
  Serious: No
  Sender: FDA-Public Use
  Company Number: US-PFIZER INC-2007007219

PATIENT
  Sex: Male
  Weight: 104.33 kg

DRUGS (3)
  1. PREGABALIN [Suspect]
     Route: 048
  2. LOSARTAN POSTASSIUM [Concomitant]
  3. MARIJUANA [Concomitant]

REACTIONS (1)
  - DRUG SCREEN POSITIVE [None]
